FAERS Safety Report 20480075 (Version 1)
Quarter: 2022Q1

REPORT INFORMATION
  Report Type: Spontaneous
  Country: US (occurrence: None)
  Receive Date: 20220216
  Receipt Date: 20220216
  Transmission Date: 20220424
  Serious: Yes (Hospitalization, Other)
  Sender: FDA-Public Use
  Company Number: 2022A069759

PATIENT

DRUGS (1)
  1. ACALABRUTINIB [Suspect]
     Active Substance: ACALABRUTINIB
     Route: 065

REACTIONS (5)
  - Oxygen saturation decreased [Unknown]
  - Condition aggravated [Unknown]
  - Lymphadenopathy [Unknown]
  - Abdominal pain [Unknown]
  - Chills [Unknown]
